FAERS Safety Report 14275922 (Version 1)
Quarter: 2017Q4

REPORT INFORMATION
  Report Type: Spontaneous
  Country: US (occurrence: US)
  Receive Date: 20171211
  Receipt Date: 20171211
  Transmission Date: 20180321
  Serious: Yes (Hospitalization, Disabling, Other)
  Sender: FDA-Public Use
  Company Number: US-OTSUKA-2015_003428

PATIENT

DRUGS (6)
  1. ARIPIPRAZOLE. [Suspect]
     Active Substance: ARIPIPRAZOLE
     Dosage: UNK
  2. CONCERTA [Concomitant]
     Active Substance: METHYLPHENIDATE HYDROCHLORIDE
     Indication: PRODUCT USED FOR UNKNOWN INDICATION
     Dosage: UNK
     Route: 065
  3. ARIPIPRAZOLE. [Suspect]
     Active Substance: ARIPIPRAZOLE
     Indication: ANXIETY
     Dosage: 10 MG, UNK
     Route: 048
     Dates: end: 201506
  4. ARIPIPRAZOLE. [Suspect]
     Active Substance: ARIPIPRAZOLE
     Indication: DEPRESSION
     Dosage: 5 MG, QD
     Route: 048
     Dates: start: 2015, end: 201506
  5. METHYLPHENIDATE. [Concomitant]
     Active Substance: METHYLPHENIDATE
     Indication: PRODUCT USED FOR UNKNOWN INDICATION
     Route: 065
  6. ARIPIPRAZOLE. [Suspect]
     Active Substance: ARIPIPRAZOLE
     Dosage: 2 MG, QD
     Route: 048
     Dates: start: 2015

REACTIONS (17)
  - Renal failure [Recovering/Resolving]
  - Sleep disorder [Unknown]
  - Eye haemorrhage [Recovered/Resolved]
  - Eyelid bleeding [Recovered/Resolved]
  - Vomiting projectile [Recovered/Resolved]
  - Off label use [Unknown]
  - Confusional state [Not Recovered/Not Resolved]
  - Hyperhidrosis [Unknown]
  - White blood cells urine positive [Unknown]
  - Pain in extremity [Not Recovered/Not Resolved]
  - Loss of consciousness [Unknown]
  - Lethargy [Unknown]
  - Chills [Unknown]
  - Blood glucose increased [Unknown]
  - Rhabdomyolysis [Unknown]
  - Amnesia [Not Recovered/Not Resolved]
  - Pyrexia [Unknown]

NARRATIVE: CASE EVENT DATE: 201506
